FAERS Safety Report 9581291 (Version 1)
Quarter: 2013Q4

REPORT INFORMATION
  Report Type: Spontaneous
  Country: US (occurrence: US)
  Receive Date: 20131002
  Receipt Date: 20131002
  Transmission Date: 20140711
  Serious: Yes (Other)
  Sender: FDA-Public Use
  Company Number: US-PFIZER INC-2013278755

PATIENT
  Age: 76 Year
  Sex: Male
  Weight: 83.9 kg

DRUGS (3)
  1. CELEBREX [Suspect]
     Indication: PAIN
     Dosage: 200 MG, 1X/DAY
     Route: 048
  2. CELEBREX [Suspect]
     Indication: ARTHRITIS
  3. VICODIN [Concomitant]
     Indication: PAIN
     Dosage: AS NEEDED

REACTIONS (4)
  - Drug dose omission [Unknown]
  - Joint injury [Not Recovered/Not Resolved]
  - Pain [Unknown]
  - Weight fluctuation [Unknown]
